FAERS Safety Report 6613674-1 (Version None)
Quarter: 2010Q1

REPORT INFORMATION
  Report Type: 
  Country: None (occurrence: None)
  Receive Date: 20100304
  Receipt Date: 20100218
  Transmission Date: 20100710
  Serious: Yes (Other)
  Sender: FDA-Public Use
  Company Number: US-ROCHE-687856

PATIENT
  Sex: Male
  Weight: 86.2 kg

DRUGS (2)
  1. BONIVA [Suspect]
     Indication: OSTEOPOROSIS
     Route: 048
     Dates: start: 20080101
  2. LAMICTAL [Concomitant]

REACTIONS (1)
  - SPINAL FUSION SURGERY [None]
